FAERS Safety Report 20923609 (Version 1)
Quarter: 2022Q2

REPORT INFORMATION
  Report Type: Spontaneous
  Country: US (occurrence: None)
  Receive Date: 20220606
  Receipt Date: 20220606
  Transmission Date: 20220720
  Serious: Yes (Hospitalization)
  Sender: FDA-Public Use
  Company Number: None

PATIENT
  Sex: Male

DRUGS (9)
  1. NEORAL [Suspect]
     Active Substance: CYCLOSPORINE
     Indication: Heart transplant
     Dosage: FREQUENCY : AS DIRECTED;?
     Route: 048
     Dates: start: 20210527
  2. CYCLOSPORINE [Concomitant]
     Active Substance: CYCLOSPORINE
  3. DILTIAZEM TAB [Concomitant]
  4. DOXAZOSIN TAB [Concomitant]
  5. HYDRALAZINE TAB [Concomitant]
  6. LEVOTHYROXIN TAB [Concomitant]
  7. POT CHLORIDE TAB [Concomitant]
  8. PRAVASTATIN [Concomitant]
     Active Substance: PRAVASTATIN
  9. PREDNISONE [Concomitant]
     Active Substance: PREDNISONE

REACTIONS (1)
  - Hospitalisation [None]
